FAERS Safety Report 22211435 (Version 1)
Quarter: 2023Q2

REPORT INFORMATION
  Report Type: Spontaneous
  Country: US (occurrence: None)
  Receive Date: 20230413
  Receipt Date: 20230413
  Transmission Date: 20230721
  Serious: No
  Sender: FDA-Public Use
  Company Number: None

PATIENT
  Sex: Female

DRUGS (1)
  1. OTEZLA [Suspect]
     Active Substance: APREMILAST
     Indication: Psoriasis
     Route: 048

REACTIONS (6)
  - Drug intolerance [None]
  - Drug ineffective [None]
  - Wrong schedule [None]
  - Feeling jittery [None]
  - Nausea [None]
  - Wrong technique in product usage process [None]
